FAERS Safety Report 12711845 (Version 1)
Quarter: 2016Q3

REPORT INFORMATION
  Report Type: Spontaneous
  Country: US (occurrence: US)
  Receive Date: 20160902
  Receipt Date: 20160902
  Transmission Date: 20161109
  Serious: Yes (Death)
  Sender: FDA-Public Use
  Company Number: None

PATIENT
  Age: 71 Year
  Sex: Male
  Weight: 81.6 kg

DRUGS (1)
  1. NIVOLUMAB [Suspect]
     Active Substance: NIVOLUMAB
     Dosage: 3MG/KG Q2WKS IV
     Route: 042
     Dates: start: 20160428

REACTIONS (4)
  - Lymphadenectomy [None]
  - Sepsis [None]
  - Pneumonia [None]
  - Respiratory failure [None]

NARRATIVE: CASE EVENT DATE: 20160814
